FAERS Safety Report 18694275 (Version 1)
Quarter: 2021Q1

REPORT INFORMATION
  Report Type: Spontaneous
  Country: FR (occurrence: FR)
  Receive Date: 20210104
  Receipt Date: 20210104
  Transmission Date: 20210419
  Serious: Yes (Hospitalization)
  Sender: FDA-Public Use
  Company Number: NVSC2020FR344343

PATIENT
  Age: 75 Year
  Sex: Female

DRUGS (3)
  1. OFLOXACINE [Concomitant]
     Active Substance: OFLOXACIN
     Dosage: 400 MG, QD
     Route: 048
     Dates: start: 20201116, end: 20201126
  2. OFLOXACINE [Concomitant]
     Active Substance: OFLOXACIN
     Indication: CATARACT OPERATION
     Dosage: 400 MG, QD
     Route: 048
     Dates: start: 20201026, end: 20201102
  3. TEGRETOL [Suspect]
     Active Substance: CARBAMAZEPINE
     Indication: NEURALGIA
     Dosage: 2 DF, QD
     Route: 048
     Dates: start: 20201008, end: 20201201

REACTIONS (2)
  - Rash maculo-papular [Not Recovered/Not Resolved]
  - Pruritus [Not Recovered/Not Resolved]

NARRATIVE: CASE EVENT DATE: 20201107
